FAERS Safety Report 9434638 (Version 1)
Quarter: 2013Q3

REPORT INFORMATION
  Report Type: Spontaneous
  Country: US (occurrence: US)
  Receive Date: 20130801
  Receipt Date: 20130801
  Transmission Date: 20140515
  Serious: No
  Sender: FDA-Public Use
  Company Number: US-PFIZER INC-2013219945

PATIENT
  Sex: Female

DRUGS (1)
  1. ADVIL [Suspect]
     Indication: PROCEDURAL PAIN
     Dosage: FOUR CAPSULES, ONCE
     Route: 048
     Dates: start: 20130726

REACTIONS (2)
  - Extra dose administered [Unknown]
  - Malaise [Unknown]
